FAERS Safety Report 8611348-9 (Version None)
Quarter: 2012Q3

REPORT INFORMATION
  Report Type: 
  Country: None (occurrence: None)
  Receive Date: 20120822
  Receipt Date: 20120816
  Transmission Date: 20120928
  Serious: Yes (Other)
  Sender: FDA-Public Use
  Company Number: DE-ABBOTT-11P-062-0871958-00

PATIENT
  Sex: Male

DRUGS (5)
  1. CALCIUM W/VITAMIN D [Concomitant]
     Indication: PRODUCT USED FOR UNKNOWN INDICATION
  2. HUMIRA [Suspect]
     Indication: CROHN'S DISEASE
     Route: 058
     Dates: start: 20110501
  3. TWINRIX [Concomitant]
     Indication: HEPATITIS A IMMUNISATION
     Dosage: FIRST INJECTION
     Route: 030
     Dates: start: 20110401, end: 20110401
  4. TWINRIX [Concomitant]
     Indication: HEPATITIS B IMMUNISATION
     Dosage: SECOND INJECTION
     Dates: start: 20110501, end: 20110501
  5. TRIAM [Concomitant]
     Indication: PRODUCT USED FOR UNKNOWN INDICATION
     Route: 030
     Dates: start: 20120301

REACTIONS (4)
  - PARAESTHESIA [None]
  - LHERMITTE'S SIGN [None]
  - MULTIPLE SCLEROSIS [None]
  - MYELITIS [None]
